FAERS Safety Report 8799639 (Version 3)
Quarter: 2013Q1

REPORT INFORMATION
  Report Type: Report from Study
  Country: US (occurrence: US)
  Receive Date: 20120919
  Receipt Date: 20130102
  Transmission Date: 20140127
  Serious: Yes (Hospitalization)
  Sender: FDA-Public Use
  Company Number: US-BAYER-2012-095176

PATIENT
  Age: 56 Year
  Sex: Female

DRUGS (12)
  1. BETASERON [Suspect]
     Indication: PRIMARY PROGRESSIVE MULTIPLE SCLEROSIS
     Dosage: 0.3 MG, QOD
     Route: 058
     Dates: start: 20120712
  2. BETASERON [Suspect]
     Indication: PRIMARY PROGRESSIVE MULTIPLE SCLEROSIS
     Dosage: UNK
     Dates: start: 20110714, end: 20120611
  3. BETASERON [Suspect]
     Indication: PRIMARY PROGRESSIVE MULTIPLE SCLEROSIS
     Dosage: UNK
     Dates: start: 20060606, end: 20080229
  4. BETASERON [Suspect]
     Indication: PRIMARY PROGRESSIVE MULTIPLE SCLEROSIS
     Dosage: UNK
     Dates: start: 20060308, end: 20060529
  5. TYLENOL REGULAR [Concomitant]
  6. AMPYRA [Concomitant]
     Dosage: 10 MG, BID
     Dates: start: 201112
  7. BACLOFEN [Concomitant]
     Dosage: 10 MG, BID
  8. CRESTOR [Concomitant]
     Dosage: 10 MG, QD
     Route: 048
  9. CYMBALTA [Concomitant]
     Dosage: 60 MG, QD
     Route: 048
  10. IMITREX [Concomitant]
     Indication: HEADACHE
     Dosage: 100 MG, UNK
  11. LYRICA [Concomitant]
     Dosage: 75 MG, BID
  12. TOPAMAX [Concomitant]
     Dosage: 200 MG, BID
     Route: 048

REACTIONS (12)
  - Cardiac septal defect [Not Recovered/Not Resolved]
  - Myocardial infarction [Not Recovered/Not Resolved]
  - Chest pain [Not Recovered/Not Resolved]
  - Cerebrovascular accident [Not Recovered/Not Resolved]
  - Leukopenia [Not Recovered/Not Resolved]
  - White blood cell count decreased [Not Recovered/Not Resolved]
  - Thrombocytopenia [Not Recovered/Not Resolved]
  - Epistaxis [Not Recovered/Not Resolved]
  - Red blood cell count decreased [Not Recovered/Not Resolved]
  - Pain in extremity [Not Recovered/Not Resolved]
  - Feeling cold [Not Recovered/Not Resolved]
  - Hepatomegaly [Not Recovered/Not Resolved]
